FAERS Safety Report 11141322 (Version 1)
Quarter: 2015Q2

REPORT INFORMATION
  Report Type: Spontaneous
  Country: US (occurrence: US)
  Receive Date: 20150527
  Receipt Date: 20150527
  Transmission Date: 20150821
  Serious: No
  Sender: FDA-Public Use
  Company Number: US-MALLINCKRODT-QSC-2014-0640

PATIENT
  Age: 64 Year
  Sex: Male

DRUGS (2)
  1. H.P. ACTHAR [Suspect]
     Active Substance: CORTICOTROPIN
     Indication: MULTIPLE SCLEROSIS
     Dosage: 100 UNITS, QD
     Route: 058
     Dates: start: 20140905, end: 20140911
  2. COPAXONE [Concomitant]
     Active Substance: GLATIRAMER ACETATE
     Dosage: UNK

REACTIONS (8)
  - Pain in extremity [Recovering/Resolving]
  - Skin warm [Recovering/Resolving]
  - Injection site discharge [Recovered/Resolved]
  - Cardiac discomfort [Recovered/Resolved]
  - Peripheral swelling [Recovering/Resolving]
  - Vision blurred [Recovered/Resolved]
  - Drug ineffective [Not Recovered/Not Resolved]
  - Dizziness [Recovered/Resolved]

NARRATIVE: CASE EVENT DATE: 201409
